FAERS Safety Report 15167584 (Version 1)
Quarter: 2018Q3

REPORT INFORMATION
  Report Type: Spontaneous
  Country: ES (occurrence: ES)
  Receive Date: 20180719
  Receipt Date: 20180719
  Transmission Date: 20181010
  Serious: Yes (Hospitalization, Other)
  Sender: FDA-Public Use
  Company Number: ES-ELI_LILLY_AND_COMPANY-ES201807006198

PATIENT
  Age: 72 Year
  Sex: Female

DRUGS (2)
  1. ACOXXEL [Suspect]
     Active Substance: ETORICOXIB
     Indication: BACK PAIN
     Dosage: UNK, UNKNOWN
     Route: 065
  2. TERIPARATIDE [Suspect]
     Active Substance: TERIPARATIDE
     Indication: PRODUCT USED FOR UNKNOWN INDICATION
     Dosage: UNK, UNKNOWN
     Route: 065
     Dates: start: 201802

REACTIONS (3)
  - Blood pressure increased [Unknown]
  - Infection [Unknown]
  - Nephrolithiasis [Unknown]
